FAERS Safety Report 7282220-4 (Version None)
Quarter: 2011Q1

REPORT INFORMATION
  Report Type: 
  Country: None (occurrence: None)
  Receive Date: 20110209
  Receipt Date: 20110201
  Transmission Date: 20110831
  Serious: Yes (Other)
  Sender: FDA-Public Use
  Company Number: NL-AMGEN-NLDSP2010003764

PATIENT
  Age: 45 Year
  Sex: Female
  Weight: 94 kg

DRUGS (2)
  1. ENBREL [Suspect]
     Indication: RHEUMATOID ARTHRITIS
     Dosage: 50 MG, WEEKLY
     Dates: start: 20100815, end: 20101120
  2. ENBREL [Suspect]
     Dosage: UNK
     Dates: start: 20101231

REACTIONS (6)
  - MIDDLE EAR EFFUSION [None]
  - TINNITUS [None]
  - OROPHARYNGEAL PAIN [None]
  - EAR PAIN [None]
  - EAR INFECTION [None]
  - RHINITIS [None]
